FAERS Safety Report 19775556 (Version 2)
Quarter: 2021Q3

REPORT INFORMATION
  Report Type: Spontaneous
  Country: BE (occurrence: BE)
  Receive Date: 20210901
  Receipt Date: 20210930
  Transmission Date: 20211014
  Serious: Yes (Hospitalization)
  Sender: FDA-Public Use
  Company Number: BE-BAUSCH-BL-2021-029693

PATIENT
  Sex: Female

DRUGS (1)
  1. KYNTHEUM [Suspect]
     Active Substance: BRODALUMAB
     Indication: PSORIASIS
     Dosage: 210MG/1,5ML, WEEK 0,1,2 THEN EVERY 2 WEEKS
     Route: 065
     Dates: start: 20210323, end: 20210618

REACTIONS (2)
  - Abscess drainage [Recovered/Resolved]
  - Staphylococcal abscess [Unknown]

NARRATIVE: CASE EVENT DATE: 20210701
